FAERS Safety Report 9263481 (Version 1)
Quarter: 2013Q2

REPORT INFORMATION
  Report Type: Spontaneous
  Country: US (occurrence: US)
  Receive Date: 20130430
  Receipt Date: 20130430
  Transmission Date: 20140414
  Serious: No
  Sender: FDA-Public Use
  Company Number: US-ABBOTT-13P-163-1056164-00

PATIENT
  Age: 2 Year
  Sex: Male
  Weight: 16.34 kg

DRUGS (6)
  1. CREON 6000 [Suspect]
     Indication: CONGENITAL PANCREATIC ANOMALY
     Dosage: 2 WITH MEALS AND 1 WITH SNACK
     Route: 048
     Dates: start: 2010
  2. CREON 6000 [Suspect]
     Indication: PANCREATIC INSUFFICIENCY
  3. PREVACID [Concomitant]
     Indication: GASTROOESOPHAGEAL REFLUX DISEASE
  4. PULMICORT [Concomitant]
     Indication: ASTHMA
  5. XOPENEX [Concomitant]
     Indication: ASTHMA
  6. ADEK [Concomitant]
     Indication: VITAMIN SUPPLEMENTATION

REACTIONS (1)
  - Swelling face [Not Recovered/Not Resolved]
